FAERS Safety Report 7249832-5 (Version None)
Quarter: 2011Q1

REPORT INFORMATION
  Report Type: 
  Country: None (occurrence: None)
  Receive Date: 20110128
  Receipt Date: 20100517
  Transmission Date: 20110831
  Serious: No
  Sender: FDA-Public Use
  Company Number: A0860715A

PATIENT
  Sex: Female

DRUGS (2)
  1. WELLBUTRIN [Suspect]
  2. LEXAPRO [Suspect]
     Dates: start: 20100501

REACTIONS (2)
  - PANIC ATTACK [None]
  - DRUG INTERACTION [None]
